FAERS Safety Report 13515422 (Version 1)
Quarter: 2017Q2

REPORT INFORMATION
  Report Type: Spontaneous
  Country: CZ (occurrence: CZ)
  Receive Date: 20170504
  Receipt Date: 20170504
  Transmission Date: 20170830
  Serious: Yes (Hospitalization, Other)
  Sender: FDA-Public Use
  Company Number: CZ-INCYTE CORPORATION-2017IN003332

PATIENT
  Sex: Female

DRUGS (16)
  1. ANAPYRIN [Concomitant]
     Dosage: 100 MG, QD
     Route: 065
  2. ANAPYRIN [Concomitant]
     Indication: PRODUCT USED FOR UNKNOWN INDICATION
     Dosage: 100 MG, BID
     Route: 065
  3. ZOVIRAX [Concomitant]
     Active Substance: ACYCLOVIR
     Indication: PRODUCT USED FOR UNKNOWN INDICATION
     Dosage: 400 MG, QD (1X1)
     Route: 065
  4. LITALIR [Concomitant]
     Active Substance: HYDROXYUREA
     Dosage: 1 DF, BID (ONCE A DAY (1X1))
     Route: 065
  5. THROMBOREDUCTIN [Concomitant]
     Dosage: 4 DF, QD
     Route: 065
  6. THROMBOREDUCTIN [Concomitant]
     Dosage: 6 DF, QD
     Route: 065
  7. LITALIR [Concomitant]
     Active Substance: HYDROXYUREA
     Dosage: 1 DF, MONDAY, WEDNESDAY, AND FRIDAY
     Route: 065
  8. THROMBOREDUCTIN [Concomitant]
     Dosage: 5 DF, QD
     Route: 065
  9. JAKAVI [Suspect]
     Active Substance: RUXOLITINIB
     Indication: POLYCYTHAEMIA VERA
     Dosage: 15 MG, BID
     Route: 065
     Dates: start: 20150602, end: 20150723
  10. LITALIR [Concomitant]
     Active Substance: HYDROXYUREA
     Indication: PRODUCT USED FOR UNKNOWN INDICATION
     Dosage: UNK UNK, TID
     Route: 065
  11. LITALIR [Concomitant]
     Active Substance: HYDROXYUREA
     Dosage: ONCE A DAY (1X1) WITH COMBINATION TWIICE A DAY (2X1)
     Route: 065
  12. LITALIR [Concomitant]
     Active Substance: HYDROXYUREA
     Dosage: 1 DF, BID (ONCE A DAY (1X1))
     Route: 065
  13. THROMBOREDUCTIN [Concomitant]
     Dosage: 5 DF, QD
     Route: 065
  14. THROMBOREDUCTIN [Concomitant]
     Dosage: 3 DF, QD
     Route: 065
  15. JAKAVI [Suspect]
     Active Substance: RUXOLITINIB
     Indication: MYELOFIBROSIS
     Dosage: 20 MG, BID
     Route: 065
     Dates: start: 20150817
  16. THROMBOREDUCTIN [Concomitant]
     Indication: PRODUCT USED FOR UNKNOWN INDICATION
     Dosage: 6 DF, QD
     Route: 065

REACTIONS (3)
  - Herpes zoster [Unknown]
  - Fall [Unknown]
  - Hand fracture [Unknown]
